FAERS Safety Report 4903336-0 (Version None)
Quarter: 2006Q1

REPORT INFORMATION
  Report Type: 
  Country: None (occurrence: None)
  Receive Date: 20060206
  Receipt Date: 20060206
  Transmission Date: 20060701
  Serious: Yes (Other)
  Sender: FDA-Public Use
  Company Number: None

PATIENT
  Sex: Male
  Weight: 122.4712 kg

DRUGS (2)
  1. WATSON - OXYCODONE [Suspect]
     Indication: OSTEOARTHRITIS
     Dosage: 40 MG - 1 TAB BID
     Dates: start: 20050701, end: 20060131
  2. WATSON - OXYCODONE [Suspect]
     Indication: SPINAL OSTEOARTHRITIS
     Dosage: 40 MG - 1 TAB BID
     Dates: start: 20050701, end: 20060131

REACTIONS (3)
  - DRUG INEFFECTIVE [None]
  - INADEQUATE ANALGESIA [None]
  - INCORRECT DOSE ADMINISTERED [None]
